FAERS Safety Report 10955708 (Version 1)
Quarter: 2015Q1

REPORT INFORMATION
  Report Type: Spontaneous
  Country: US (occurrence: None)
  Receive Date: 20150226
  Receipt Date: 20150226
  Transmission Date: 20150721
  Serious: Yes (Hospitalization, Other)
  Sender: FDA-Public Use
  Company Number: TPA2011A04158

PATIENT
  Age: 77 Year
  Sex: Female

DRUGS (7)
  1. UNKNOWN BETA BLOCKER (BETA BLOCKING AGENTS) [Concomitant]
  2. LOSARTAN [Concomitant]
     Active Substance: LOSARTAN
  3. ACTOS [Suspect]
     Active Substance: PIOGLITAZONE HYDROCHLORIDE
     Indication: DIABETES MELLITUS
     Dosage: 45 MG 1 IN 1D, PER ORAL
     Dates: start: 2007, end: 20110709
  4. METOPROLOL (METOPROLOL) [Concomitant]
     Active Substance: METOPROLOL
  5. UNKNOWN (ANGIOTENSIN II ANTAGONISTS) [Concomitant]
  6. ADVIL (MEFENAMIC ACID) [Concomitant]
     Active Substance: MEFENAMIC ACID
  7. UNKNOWN STATIN (HMG COA REDUCTASE INHIBITORS) [Concomitant]

REACTIONS (3)
  - Oedema [None]
  - Orthopnoea [None]
  - Cardiac failure congestive [None]

NARRATIVE: CASE EVENT DATE: 20110709
